FAERS Safety Report 9648657 (Version 3)
Quarter: 2013Q4

REPORT INFORMATION
  Report Type: Spontaneous
  Country: US (occurrence: US)
  Receive Date: 20131028
  Receipt Date: 20131218
  Transmission Date: 20140711
  Serious: Yes (Hospitalization)
  Sender: FDA-Public Use
  Company Number: US-UCBSA-048604

PATIENT
  Age: 58 Year
  Sex: Male
  Weight: 135 kg

DRUGS (7)
  1. CIMZIA [Suspect]
     Indication: CROHN^S DISEASE
     Dosage: DOSE :200 MG ,EXPIRY DATE:??/DEC/2015
     Route: 058
     Dates: start: 20090506
  2. MULTIVITAMIN [Concomitant]
     Indication: CROHN^S DISEASE
     Dosage: 1 TAB DAILY
     Route: 048
     Dates: start: 20090506
  3. MULTIVITAMIN [Concomitant]
     Indication: NUTRITIONAL SUPPLEMENTATION
     Dosage: 1 TAB DAILY
     Route: 048
     Dates: start: 20090506
  4. GENTEAL TEARS [Concomitant]
     Indication: DRY EYE
     Dosage: 1 DROP EACH EYE DAILY
     Dates: start: 20090520
  5. TYLENOL [Concomitant]
     Indication: HEADACHE
     Dosage: 500-1000  MG 1-2 DAILY AS NECESSARY
     Route: 048
     Dates: start: 20121025
  6. TYLENOL [Concomitant]
     Indication: PYREXIA
     Dosage: 500-1000  MG 1-2 DAILY AS NECESSARY
     Route: 048
     Dates: start: 20121025
  7. TYLENOL [Concomitant]
     Indication: PAIN
     Dosage: 500-1000  MG 1-2 DAILY AS NECESSARY
     Route: 048
     Dates: start: 20121025

REACTIONS (5)
  - Gastrointestinal stoma complication [Recovered/Resolved]
  - Nasopharyngitis [Recovered/Resolved]
  - Faeces discoloured [Recovered/Resolved]
  - Headache [Recovered/Resolved]
  - Stress [Unknown]
